FAERS Safety Report 7746141-2 (Version None)
Quarter: 2011Q3

REPORT INFORMATION
  Report Type: 
  Country: None (occurrence: None)
  Receive Date: 20110913
  Receipt Date: 20110831
  Transmission Date: 20111222
  Serious: Yes (Life-Threatening, Hospitalization, Other)
  Sender: FDA-Public Use
  Company Number: US-ELI_LILLY_AND_COMPANY-US201107000823

PATIENT
  Sex: Female
  Weight: 67.1 kg

DRUGS (2)
  1. FORTEO [Suspect]
     Indication: OSTEOPOROSIS
     Dosage: 20 UG, QD
     Route: 058
     Dates: start: 20101101
  2. FORTEO [Suspect]
     Dosage: 20 UG, QD
     Route: 058
     Dates: end: 20110501

REACTIONS (10)
  - CARDIAC ARREST [None]
  - GAIT DISTURBANCE [None]
  - FLUID OVERLOAD [None]
  - BACK PAIN [None]
  - PERIODONTAL DISEASE [None]
  - GENERAL SYMPTOM [None]
  - HAEMORRHOID OPERATION [None]
  - MALAISE [None]
  - ARTHRITIS [None]
  - DRUG DOSE OMISSION [None]
